FAERS Safety Report 4610156-3 (Version None)
Quarter: 2005Q1

REPORT INFORMATION
  Report Type: 
  Country: None (occurrence: None)
  Receive Date: 20050316
  Receipt Date: 20050304
  Transmission Date: 20050727
  Serious: Yes (Death, Life-Threatening, Hospitalization, Other)
  Sender: FDA-Public Use
  Company Number: US-GLAXOSMITHKLINE-A0549476A

PATIENT
  Age: 37 Year
  Sex: Male

DRUGS (1)
  1. NICODERM CQ [Suspect]
     Indication: SMOKING CESSATION THERAPY
     Route: 062
     Dates: start: 20010701, end: 20010901

REACTIONS (7)
  - ANEURYSM [None]
  - BRAIN DEATH [None]
  - GRAND MAL CONVULSION [None]
  - HEADACHE [None]
  - MYDRIASIS [None]
  - NECK INJURY [None]
  - VOMITING [None]
